FAERS Safety Report 10087136 (Version 2)
Quarter: 2014Q2

REPORT INFORMATION
  Report Type: Spontaneous
  Country: TR (occurrence: TR)
  Receive Date: 20140418
  Receipt Date: 20140505
  Transmission Date: 20141212
  Serious: Yes (Death)
  Sender: FDA-Public Use
  Company Number: TR-ASTELLAS-2014US003859

PATIENT
  Age: 43 Year
  Sex: Male

DRUGS (10)
  1. AMPHOTERICIN B [Suspect]
     Indication: CEREBRAL ASPERGILLOSIS
     Route: 065
  2. AMPHOTERICIN B [Concomitant]
     Indication: CEREBRAL ASPERGILLOSIS
     Dosage: UNK UNK, UNKNOWN FREQ.
     Route: 065
  3. CASPOFUNGIN [Concomitant]
     Indication: PRODUCT USED FOR UNKNOWN INDICATION
     Route: 065
  4. CASPOFUNGIN [Concomitant]
     Route: 065
  5. ITRACONAZOLE [Concomitant]
     Indication: PRODUCT USED FOR UNKNOWN INDICATION
     Dosage: UNK UNK, UNKNOWN FREQ.
     Route: 065
  6. VORICONAZOLE [Concomitant]
     Indication: PRODUCT USED FOR UNKNOWN INDICATION
     Route: 065
  7. VORICONAZOLE [Concomitant]
     Route: 065
  8. CEFTRIAXONE [Concomitant]
     Indication: PRODUCT USED FOR UNKNOWN INDICATION
     Dosage: UNK UNK, UNKNOWN FREQ.
     Route: 065
  9. VANCOMYCIN [Concomitant]
     Indication: PRODUCT USED FOR UNKNOWN INDICATION
     Dosage: UNK UNK, UNKNOWN FREQ.
     Route: 065
  10. METRONIDAZOLE [Concomitant]
     Indication: PRODUCT USED FOR UNKNOWN INDICATION
     Dosage: UNK UNK, UNKNOWN FREQ.
     Route: 065

REACTIONS (1)
  - Drug ineffective [Fatal]
